FAERS Safety Report 7772707-X (Version None)
Quarter: 2011Q3

REPORT INFORMATION
  Report Type: 
  Country: None (occurrence: None)
  Receive Date: 20110922
  Receipt Date: 20100302
  Transmission Date: 20111222
  Serious: No
  Sender: FDA-Public Use
  Company Number: US-ASTRAZENECA-2010SE53073

PATIENT
  Age: 57 Year
  Sex: Male
  Weight: 176 kg

DRUGS (5)
  1. SEROQUEL [Suspect]
     Route: 048
     Dates: start: 20081226
  2. PROVENTIL-HFA [Concomitant]
     Dosage: 90 MCG
     Dates: start: 20081226
  3. LEXAPRO [Concomitant]
     Route: 048
     Dates: start: 20090507
  4. BENICAR HCT [Concomitant]
     Dosage: 40-12.5MG
     Dates: start: 20090507
  5. DEXTROAMPHETAMINE SULFATE [Concomitant]
     Dates: start: 20090507

REACTIONS (8)
  - SKIN LESION [None]
  - HYPERTENSION [None]
  - NOCTURIA [None]
  - TYPE 2 DIABETES MELLITUS [None]
  - OBESITY [None]
  - HYPERGLYCAEMIA [None]
  - BENIGN PROSTATIC HYPERPLASIA [None]
  - GASTROOESOPHAGEAL REFLUX DISEASE [None]
